FAERS Safety Report 7095869-9 (Version None)
Quarter: 2010Q4

REPORT INFORMATION
  Report Type: 
  Country: None (occurrence: None)
  Receive Date: 20101111
  Receipt Date: 20101029
  Transmission Date: 20110411
  Serious: Yes (Other)
  Sender: FDA-Public Use
  Company Number: US-JNJFOC-20101100920

PATIENT
  Sex: Male

DRUGS (1)
  1. LEVAQUIN [Suspect]
     Indication: PNEUMONIA
     Route: 048

REACTIONS (8)
  - JOINT INJURY [None]
  - LIGAMENT RUPTURE [None]
  - MENISCUS LESION [None]
  - MUSCLE INJURY [None]
  - ROTATOR CUFF SYNDROME [None]
  - TENDON RUPTURE [None]
  - TENDONITIS [None]
  - TENOSYNOVITIS [None]
